FAERS Safety Report 9294879 (Version 1)
Quarter: 2013Q2

REPORT INFORMATION
  Report Type: Spontaneous
  Country: US (occurrence: US)
  Receive Date: 20130517
  Receipt Date: 20130517
  Transmission Date: 20140414
  Serious: No
  Sender: FDA-Public Use
  Company Number: US-009507513-1305USA005257

PATIENT
  Age: 60 Year
  Sex: Female

DRUGS (4)
  1. PEGINTRON [Suspect]
     Indication: HEPATITIS C
     Dosage: 150 MICROGRAM, QW
     Route: 058
     Dates: start: 20130411
  2. METOPROLOL [Concomitant]
  3. AMLODIPINE [Concomitant]
  4. RIBAPAK [Concomitant]

REACTIONS (7)
  - Chromaturia [Unknown]
  - Genital pain [Unknown]
  - Musculoskeletal chest pain [Unknown]
  - Flank pain [Unknown]
  - Diarrhoea [Unknown]
  - Fatigue [Unknown]
  - Rash [Unknown]
